FAERS Safety Report 13363317 (Version 16)
Quarter: 2018Q3

REPORT INFORMATION
  Report Type: Report from Study
  Country: ES (occurrence: ES)
  Receive Date: 20170323
  Receipt Date: 20180706
  Transmission Date: 20181010
  Serious: Yes (Hospitalization)
  Sender: FDA-Public Use
  Company Number: ES-ROCHE-1909909

PATIENT
  Age: 64 Year
  Sex: Male
  Weight: 67.7 kg

DRUGS (20)
  1. CISPLATIN. [Suspect]
     Active Substance: CISPLATIN
     Indication: NON-SMALL CELL LUNG CANCER STAGE IV
     Dosage: MOST RECENT DOSE 132.64 MG ON  08/MAR/2017?MOST RECENT DOSE 05/JUN/2017 (121.24 MG)?ON DAY 1
     Route: 042
     Dates: start: 20170308
  2. CLISTERAN [Concomitant]
     Indication: CONSTIPATION
     Route: 065
     Dates: start: 20170316
  3. METOCLOPRAMIDA [Concomitant]
     Active Substance: METOCLOPRAMIDE HYDROCHLORIDE
     Indication: PROPHYLAXIS
     Route: 065
     Dates: start: 20170316, end: 20170327
  4. IVEMEND [Concomitant]
     Active Substance: FOSAPREPITANT DIMEGLUMINE
     Route: 065
     Dates: start: 20170308, end: 20170308
  5. ATEZOLIZUMAB. [Suspect]
     Active Substance: ATEZOLIZUMAB
     Indication: NON-SMALL CELL LUNG CANCER STAGE IV
     Dosage: MOST RECENT DOSE 1200 MG 08/MAR/2017?MOST RECENT DOSE 1200 MG 05/JUN/2017??FIXED DOSE
     Route: 042
     Dates: start: 20170308
  6. HEPARIN SODIUM. [Concomitant]
     Active Substance: HEPARIN SODIUM
     Indication: THROMBOSIS
     Dosage: 7500
     Route: 065
     Dates: start: 201702, end: 20170507
  7. LOSARTAN. [Concomitant]
     Active Substance: LOSARTAN
     Indication: PROPHYLAXIS
     Route: 065
     Dates: start: 2007
  8. PEMETREXED. [Suspect]
     Active Substance: PEMETREXED
     Indication: NON-SMALL CELL LUNG CANCER STAGE IV
     Dosage: MOST RECENT DOSE 08/MAR/2017 884.12 MG?MOST RECENT DOSE 05/JUN/2017 (808.29 MG)?ON DAY 1
     Route: 042
     Dates: start: 20170308
  9. VITAMINE B12 ROCHE [Concomitant]
     Route: 065
     Dates: start: 20170308
  10. SODIUM CHLORIDE. [Concomitant]
     Active Substance: SODIUM CHLORIDE
     Route: 065
     Dates: start: 20170308, end: 20170308
  11. GRANISETRON [Concomitant]
     Active Substance: GRANISETRON
     Route: 065
     Dates: start: 20170308, end: 20170308
  12. DEXCHLORPHENIRAMINE [Concomitant]
     Active Substance: DEXCHLORPHENIRAMINE
     Route: 065
     Dates: start: 20170308, end: 20170308
  13. DIAZEPAN [Concomitant]
     Active Substance: DIAZEPAM
     Indication: PROPHYLAXIS
     Route: 065
     Dates: start: 201612
  14. PARACETAMOL [Concomitant]
     Active Substance: ACETAMINOPHEN
     Indication: PAIN PROPHYLAXIS
     Route: 065
     Dates: start: 201612
  15. PARACETAMOL [Concomitant]
     Active Substance: ACETAMINOPHEN
     Indication: PANCYTOPENIA
     Route: 065
     Dates: start: 20170316, end: 20170327
  16. HEPARIN SODIUM. [Concomitant]
     Active Substance: HEPARIN SODIUM
     Dosage: 10000
     Route: 065
     Dates: start: 20170508
  17. MANITOL [Concomitant]
     Active Substance: MANNITOL
     Route: 065
     Dates: start: 20170308, end: 20170308
  18. LORAZEPAN [Concomitant]
     Active Substance: LORAZEPAM
     Indication: PROPHYLAXIS
  19. HODERNAL [Concomitant]
     Indication: CONSTIPATION
     Route: 065
     Dates: start: 20170316, end: 20170322
  20. FOLIC ACID. [Concomitant]
     Active Substance: FOLIC ACID
     Route: 065
     Dates: start: 20170308

REACTIONS (3)
  - Neutropenia [Recovered/Resolved]
  - Hyponatraemia [Recovered/Resolved]
  - Pancytopenia [Recovered/Resolved]

NARRATIVE: CASE EVENT DATE: 20170316
